FAERS Safety Report 4429168-8 (Version None)
Quarter: 2004Q3

REPORT INFORMATION
  Report Type: 
  Country: None (occurrence: None)
  Receive Date: 20040726
  Receipt Date: 20040407
  Transmission Date: 20050211
  Serious: No
  Sender: FDA-Public Use
  Company Number: USA040464400

PATIENT
  Age: 84 Year
  Sex: Female

DRUGS (9)
  1. FORTEO [Suspect]
     Indication: OSTEOPOROSIS
     Dosage: 20 UG DAY
     Dates: start: 20040324, end: 20040406
  2. CELEBREX [Concomitant]
  3. ALLEGRA [Concomitant]
  4. PRAVACHOL [Concomitant]
  5. ASPIRIN [Concomitant]
  6. ACIPHEX [Concomitant]
  7. VITAMIN D [Concomitant]
  8. TIMOPTIC [Concomitant]
  9. CALCIUM [Concomitant]

REACTIONS (4)
  - COUGH [None]
  - RHINORRHOEA [None]
  - SWELLING FACE [None]
  - VOMITING [None]
